FAERS Safety Report 4557045-0 (Version None)
Quarter: 2005Q1

REPORT INFORMATION
  Report Type: 
  Country: None (occurrence: None)
  Receive Date: 20050118
  Receipt Date: 20050105
  Transmission Date: 20050727
  Serious: Yes (Hospitalization)
  Sender: FDA-Public Use
  Company Number: 2005AP00034

PATIENT
  Age: 64 Year
  Sex: Male

DRUGS (5)
  1. CASODEX [Suspect]
     Indication: PROSTATE CANCER
     Dosage: 80 MG DAILY PO
     Route: 048
     Dates: end: 20041230
  2. CASODEX [Suspect]
     Indication: PROSTATE CANCER
     Dosage: 80 MG DAILY PO
     Route: 048
     Dates: start: 20050107
  3. LEUPROLIDE ACETATE [Concomitant]
  4. ACTOS [Concomitant]
  5. EUGLUCON [Concomitant]

REACTIONS (4)
  - CEREBRAL HAEMORRHAGE [None]
  - DYSPHAGIA [None]
  - MEDICATION ERROR [None]
  - MOVEMENT DISORDER [None]
